FAERS Safety Report 13621800 (Version 1)
Quarter: 2017Q2

REPORT INFORMATION
  Report Type: Spontaneous
  Country: US (occurrence: US)
  Receive Date: 20170607
  Receipt Date: 20170607
  Transmission Date: 20170830
  Serious: No
  Sender: FDA-Public Use
  Company Number: US-ROCHE-1872079

PATIENT
  Age: 59 Year
  Sex: Male
  Weight: 106.69 kg

DRUGS (4)
  1. KLONOPIN [Suspect]
     Active Substance: CLONAZEPAM
     Indication: INSOMNIA
     Dosage: ONE TABLET AT BEDTIME
     Route: 048
  2. KLONOPIN [Suspect]
     Active Substance: CLONAZEPAM
     Indication: ANXIETY
     Dosage: ONE TABLET AT BEDTIME
     Route: 048
  3. KLONOPIN [Suspect]
     Active Substance: CLONAZEPAM
     Dosage: ONE TABLET AT BEDTIME
     Route: 048
  4. TRAZODONE [Concomitant]
     Active Substance: TRAZODONE HYDROCHLORIDE
     Indication: INSOMNIA
     Dosage: 1 TO 3 PILLS AS NEEDED
     Route: 048
     Dates: start: 20161221

REACTIONS (1)
  - Insomnia [Not Recovered/Not Resolved]

NARRATIVE: CASE EVENT DATE: 20161221
